FAERS Safety Report 5605149-3 (Version None)
Quarter: 2008Q1

REPORT INFORMATION
  Report Type: 
  Country: None (occurrence: None)
  Receive Date: 20080123
  Receipt Date: 20080115
  Transmission Date: 20080703
  Serious: Yes (Disabling)
  Sender: FDA-Public Use
  Company Number: OSCN-PR-0801S-0026

PATIENT
  Age: 60 Year
  Sex: Male

DRUGS (5)
  1. OMNISCAN [Suspect]
     Indication: DRUG USE FOR UNKNOWN INDICATION
     Dosage: , SINGLE DOSE, I.V.; , SINGLE DOSE, I.V.; , SINGLE DOSE, I.V.
     Route: 042
     Dates: start: 20050714, end: 20050714
  2. OMNISCAN [Suspect]
     Indication: DRUG USE FOR UNKNOWN INDICATION
     Dosage: , SINGLE DOSE, I.V.; , SINGLE DOSE, I.V.; , SINGLE DOSE, I.V.
     Route: 042
     Dates: start: 20060319, end: 20060319
  3. OMNISCAN [Suspect]
     Indication: DRUG USE FOR UNKNOWN INDICATION
     Dosage: , SINGLE DOSE, I.V.; , SINGLE DOSE, I.V.; , SINGLE DOSE, I.V.
     Route: 042
     Dates: start: 20060320, end: 20060320
  4. OMNISCAN [Suspect]
     Indication: DRUG USE FOR UNKNOWN INDICATION
     Dosage: , SINGLE DOSE, I.V.; , SINGLE DOSE, I.V.; , SINGLE DOSE, I.V.
     Route: 042
     Dates: start: 20060802, end: 20060802
  5. OPTIMARK [Concomitant]

REACTIONS (1)
  - NEPHROGENIC SYSTEMIC FIBROSIS [None]
